FAERS Safety Report 6823563-5 (Version None)
Quarter: 2010Q3

REPORT INFORMATION
  Report Type: 
  Country: None (occurrence: None)
  Receive Date: 20100708
  Receipt Date: 20060724
  Transmission Date: 20110219
  Serious: No
  Sender: FDA-Public Use
  Company Number: US-PFIZER INC-2006092034

PATIENT
  Sex: Female
  Weight: 73.48 kg

DRUGS (7)
  1. CHANTIX [Suspect]
     Indication: SMOKING CESSATION THERAPY
     Route: 065
     Dates: start: 20060721
  2. DYAZIDE [Concomitant]
     Route: 065
  3. XANAX [Concomitant]
     Indication: ANXIETY
     Route: 065
  4. WELLBUTRIN [Concomitant]
     Route: 065
  5. NEXIUM [Concomitant]
     Route: 065
  6. LEVOTHYROXINE SODIUM [Concomitant]
     Indication: THYROID DISORDER
     Route: 065
  7. ATENOLOL [Concomitant]
     Indication: HYPERTENSION
     Route: 065

REACTIONS (1)
  - DIARRHOEA [None]
